FAERS Safety Report 9972112 (Version 1)
Quarter: 2014Q1

REPORT INFORMATION
  Report Type: Spontaneous
  Country: US (occurrence: None)
  Receive Date: 20140218
  Receipt Date: 20140218
  Transmission Date: 20141002
  Serious: Yes (Hospitalization)
  Sender: FDA-Public Use
  Company Number: None

PATIENT
  Age: 60 Year
  Sex: Female
  Weight: 74.84 kg

DRUGS (9)
  1. RANIBIZUMAB [Suspect]
     Indication: DIABETIC RETINAL OEDEMA
     Dosage: INTRAVITREAL.
     Dates: start: 20140114
  2. AMLODIPINE [Concomitant]
  3. GABAPENTINE [Concomitant]
  4. LISINOPRIL [Concomitant]
  5. FERROUS FUMARATE [Concomitant]
  6. ECOTRIN [Concomitant]
  7. GLIMEPERIDE [Concomitant]
  8. CARVEDILOL [Concomitant]
  9. SIMVASTATIN [Concomitant]

REACTIONS (2)
  - Fall [None]
  - Urinary tract infection [None]
